FAERS Safety Report 5797712-4 (Version None)
Quarter: 2008Q3

REPORT INFORMATION
  Report Type: 
  Country: None (occurrence: None)
  Receive Date: 20080702
  Receipt Date: 20080626
  Transmission Date: 20090109
  Serious: Yes (Disabling, Other)
  Sender: FDA-Public Use
  Company Number: IL-BRISTOL-MYERS SQUIBB COMPANY-14246615

PATIENT
  Sex: Male

DRUGS (2)
  1. SINEMET [Suspect]
     Indication: PARKINSON'S DISEASE
     Route: 048
     Dates: start: 19910501
  2. ELDEPRYL [Concomitant]
     Dosage: RESTARTED FROM 1997.
     Dates: start: 19910501

REACTIONS (2)
  - PATHOLOGICAL GAMBLING [None]
  - SUICIDE ATTEMPT [None]
